FAERS Safety Report 16976247 (Version 1)
Quarter: 2019Q4

REPORT INFORMATION
  Report Type: Spontaneous
  Country: UZ (occurrence: UZ)
  Receive Date: 20191030
  Receipt Date: 20191030
  Transmission Date: 20200122
  Serious: Yes (Other)
  Sender: FDA-Public Use
  Company Number: UZ-JNJFOC-20191029138

PATIENT
  Age: 59 Year
  Sex: Female
  Weight: 77 kg

DRUGS (6)
  1. LINEZOLID. [Suspect]
     Active Substance: LINEZOLID
     Indication: TUBERCULOSIS
     Dates: start: 20190814, end: 20190916
  2. INSULIN MIXTARD [Concomitant]
     Active Substance: INSULIN HUMAN
     Indication: TYPE 2 DIABETES MELLITUS
     Dosage: 30 UNITS
     Route: 058
     Dates: start: 201906
  3. PROTHIONAMIDE [Suspect]
     Active Substance: PROTIONAMIDE
     Indication: TUBERCULOSIS
     Dates: start: 20190814, end: 20190916
  4. CLOFAZIMINE [Suspect]
     Active Substance: CLOFAZIMINE
     Indication: TUBERCULOSIS
     Dates: start: 20190814, end: 20190916
  5. BEDAQUILINE [Suspect]
     Active Substance: BEDAQUILINE
     Indication: TUBERCULOSIS
     Dates: start: 20190814, end: 20190916
  6. RIFAMPICIN [Suspect]
     Active Substance: RIFAMPIN
     Indication: TUBERCULOSIS
     Dates: start: 20190814, end: 20190916

REACTIONS (3)
  - Medication error [Unknown]
  - Alanine aminotransferase increased [Recovering/Resolving]
  - Hepatomegaly [Unknown]

NARRATIVE: CASE EVENT DATE: 20190911
